FAERS Safety Report 18463721 (Version 1)
Quarter: 2020Q4

REPORT INFORMATION
  Report Type: Spontaneous
  Country: JP (occurrence: JP)
  Receive Date: 20201104
  Receipt Date: 20201104
  Transmission Date: 20210114
  Serious: Yes (Other)
  Sender: FDA-Public Use
  Company Number: JP-FRESENIUS KABI-FK202011622

PATIENT
  Age: 50 Year
  Sex: Male

DRUGS (6)
  1. MEROPENEM. [Concomitant]
     Active Substance: MEROPENEM
     Indication: LIMBIC ENCEPHALITIS
     Dosage: UNKNOWN
     Route: 065
  2. ACICLOVIR [Concomitant]
     Active Substance: ACYCLOVIR
     Indication: MENINGITIS
  3. DEXAMETHASONE INJECTION (MANUFACTURER UNKNOWN) [Suspect]
     Active Substance: DEXAMETHASONE
     Indication: LIMBIC ENCEPHALITIS
     Dosage: UNKNOWN
     Route: 065
  4. DEXAMETHASONE INJECTION (MANUFACTURER UNKNOWN) [Suspect]
     Active Substance: DEXAMETHASONE
     Indication: MENINGITIS
  5. MEROPENEM. [Concomitant]
     Active Substance: MEROPENEM
     Indication: MENINGITIS
  6. ACICLOVIR [Concomitant]
     Active Substance: ACYCLOVIR
     Indication: LIMBIC ENCEPHALITIS
     Dosage: UNKNOWN
     Route: 065

REACTIONS (2)
  - Meningitis cryptococcal [Recovered/Resolved]
  - Cerebral infarction [Recovered/Resolved]
